FAERS Safety Report 6697043-4 (Version None)
Quarter: 2010Q2

REPORT INFORMATION
  Report Type: 
  Country: None (occurrence: None)
  Receive Date: 20100426
  Receipt Date: 20100415
  Transmission Date: 20101027
  Serious: Yes (Other)
  Sender: FDA-Public Use
  Company Number: JP-JNJFOC-20100406040

PATIENT
  Age: 63 Year
  Sex: Male

DRUGS (26)
  1. INFLIXIMAB, RECOMBINANT [Suspect]
     Indication: PSORIATIC ARTHROPATHY
     Route: 042
  2. INFLIXIMAB, RECOMBINANT [Suspect]
     Route: 042
  3. INFLIXIMAB, RECOMBINANT [Suspect]
     Route: 042
  4. INFLIXIMAB, RECOMBINANT [Suspect]
     Route: 042
  5. INFLIXIMAB, RECOMBINANT [Suspect]
     Route: 042
  6. INFLIXIMAB, RECOMBINANT [Suspect]
     Route: 042
  7. INFLIXIMAB, RECOMBINANT [Suspect]
     Route: 042
  8. INFLIXIMAB, RECOMBINANT [Suspect]
     Route: 042
  9. INFLIXIMAB, RECOMBINANT [Suspect]
     Route: 042
  10. INFLIXIMAB, RECOMBINANT [Suspect]
     Indication: PSORIASIS
     Route: 042
  11. INFLIXIMAB, RECOMBINANT [Suspect]
     Route: 042
  12. INFLIXIMAB, RECOMBINANT [Suspect]
     Route: 042
  13. INFLIXIMAB, RECOMBINANT [Suspect]
     Route: 042
  14. INFLIXIMAB, RECOMBINANT [Suspect]
     Route: 042
  15. INFLIXIMAB, RECOMBINANT [Suspect]
     Route: 042
  16. INFLIXIMAB, RECOMBINANT [Suspect]
     Route: 042
  17. INFLIXIMAB, RECOMBINANT [Suspect]
     Route: 042
  18. INFLIXIMAB, RECOMBINANT [Suspect]
     Route: 042
  19. PLACEBO [Suspect]
     Indication: PSORIATIC ARTHROPATHY
  20. PLACEBO [Suspect]
  21. PLACEBO [Suspect]
  22. PLACEBO [Suspect]
  23. PLACEBO [Suspect]
     Indication: PSORIASIS
  24. PLACEBO [Suspect]
  25. PLACEBO [Suspect]
  26. PLACEBO [Suspect]

REACTIONS (1)
  - OROPHARYNGEAL CANCER STAGE IV [None]
